FAERS Safety Report 9999112 (Version 3)
Quarter: 2014Q1

REPORT INFORMATION
  Report Type: Spontaneous
  Country: JP (occurrence: None)
  Receive Date: 20140310
  Receipt Date: 20140312
  Transmission Date: 20141002
  Serious: Yes (Hospitalization)
  Sender: FDA-Public Use
  Company Number: AE-SPE-2014-001

PATIENT
  Age: 60 Year
  Sex: Male

DRUGS (8)
  1. CEFDITOREN PIVOXIL [Suspect]
     Indication: NASOPHARYNGITIS
     Route: 048
     Dates: start: 20131120, end: 20131123
  2. CEFDITOREN PIVOXIL [Suspect]
     Route: 048
     Dates: start: 20131120, end: 20131123
  3. WARFARIN (WARFARIN POTASSOIUM) [Concomitant]
  4. KERLONG (BETAXOLOL HYDROCHLORIDE) [Concomitant]
  5. BLOSTAR (FAMOTIDINE) [Concomitant]
  6. DIOVAN (VALSARTAN) [Concomitant]
  7. LOXOPROFEN SODIUM HYDRATE [Concomitant]
  8. TRANEXAMIC ACID [Concomitant]

REACTIONS (13)
  - Drug eruption [None]
  - Ocular hyperaemia [None]
  - Face oedema [None]
  - Generalised erythema [None]
  - Conjunctivitis [None]
  - Lymphocyte stimulation test positive [None]
  - Erythema [None]
  - Headache [None]
  - Diarrhoea [None]
  - Occult blood positive [None]
  - Stevens-Johnson syndrome [None]
  - Pyrexia [None]
  - Pain [None]
